FAERS Safety Report 11225174 (Version 1)
Quarter: 2015Q2

REPORT INFORMATION
  Report Type: Spontaneous
  Country: JP (occurrence: JP)
  Receive Date: 20150629
  Receipt Date: 20150629
  Transmission Date: 20150821
  Serious: Yes (Other)
  Sender: FDA-Public Use
  Company Number: JP-FRESENIUS KABI-FK201502961

PATIENT
  Age: 31 Month
  Sex: Female

DRUGS (14)
  1. VALPROATE [Suspect]
     Active Substance: VALPROIC ACID
     Indication: SEIZURE
     Route: 065
  2. TIZANIDINE HYDROCHLORIDE. [Suspect]
     Active Substance: TIZANIDINE HYDROCHLORIDE
     Indication: MYOCLONUS
  3. VALPROATE (MANUFACTURER UNKNOWN) (VALOPROATE SODIUM) (VALOPROATE SODIUM) [Suspect]
     Active Substance: VALPROATE SODIUM
     Indication: MYOCLONUS
  4. MIDAZOLAM [Suspect]
     Active Substance: MIDAZOLAM\MIDAZOLAM HYDROCHLORIDE
     Indication: MYOCLONUS
  5. PROPOFOL (MANUFACTURER UNKNOWN) [Suspect]
     Active Substance: PROPOFOL
     Indication: STATUS EPILEPTICUS
     Route: 042
  6. DANTROLENE [Suspect]
     Active Substance: DANTROLENE
     Indication: SEIZURE
     Route: 065
  7. DANTROLENE [Suspect]
     Active Substance: DANTROLENE
     Indication: MYOCLONUS
  8. MIDAZOLAM [Suspect]
     Active Substance: MIDAZOLAM\MIDAZOLAM HYDROCHLORIDE
     Indication: STATUS EPILEPTICUS
     Route: 042
  9. TOPIRAMATE. [Suspect]
     Active Substance: TOPIRAMATE
     Indication: SEIZURE
     Route: 065
  10. CLOBAZAM [Suspect]
     Active Substance: CLOBAZAM
     Indication: SEIZURE
     Route: 065
  11. CLOBAZAM [Suspect]
     Active Substance: CLOBAZAM
     Indication: MYOCLONUS
  12. PROPOFOL (MANUFACTURER UNKNOWN) [Suspect]
     Active Substance: PROPOFOL
     Indication: MYOCLONUS
  13. TOPIRAMATE. [Suspect]
     Active Substance: TOPIRAMATE
     Indication: MYOCLONUS
  14. TIZANIDINE HYDROCHLORIDE. [Suspect]
     Active Substance: TIZANIDINE HYDROCHLORIDE
     Indication: SEIZURE
     Route: 065

REACTIONS (4)
  - Osteoporosis [None]
  - Osteomyelitis [None]
  - Fanconi syndrome [Recovered/Resolved]
  - Staphylococcus test positive [None]
